FAERS Safety Report 18315072 (Version 2)
Quarter: 2020Q4

REPORT INFORMATION
  Report Type: Spontaneous
  Country: DE (occurrence: DE)
  Receive Date: 20200926
  Receipt Date: 20201013
  Transmission Date: 20210113
  Serious: Yes (Hospitalization)
  Sender: FDA-Public Use
  Company Number: DE-TEVA-2020-DE-1830674

PATIENT
  Age: 16 Year
  Sex: Male
  Weight: 73 kg

DRUGS (4)
  1. AKNENORMIN 10 MG [Suspect]
     Active Substance: ISOTRETINOIN
     Indication: ACNE FULMINANS
     Dosage: 1 DOSAGE FORMS DAILY; AKNENORMIN 10 MG
     Route: 048
     Dates: start: 201904, end: 20190523
  2. AKNEMYCIN 20MG/G [Suspect]
     Active Substance: ERYTHROMYCIN
     Indication: ACNE
     Dosage: AKNEMYCIN 20MG/G
     Route: 061
  3. CLINDAMYCIN 450MG [Suspect]
     Active Substance: CLINDAMYCIN
     Indication: ACNE
     Dosage: UNIT DOSE : 3 DF, DAILY DOSE: 3 DOSAGE FORM EVERY DAYS 3 SEPARATED DOSES
     Route: 048
  4. URBASON [Suspect]
     Active Substance: METHYLPREDNISOLONE
     Indication: ACNE
     Route: 048
     Dates: end: 20190520

REACTIONS (6)
  - Arthralgia [Unknown]
  - SAPHO syndrome [Unknown]
  - Pyrexia [Unknown]
  - Acne [Unknown]
  - Weight decreased [Unknown]
  - Myalgia [Unknown]
